FAERS Safety Report 5067053-1 (Version None)
Quarter: 2006Q3

REPORT INFORMATION
  Report Type: 
  Country: None (occurrence: None)
  Receive Date: 20060801
  Receipt Date: 20060311
  Transmission Date: 20061208
  Serious: Yes (Life-Threatening, Hospitalization, Other)
  Sender: FDA-Public Use
  Company Number: US-BAYER-200611082BCC

PATIENT
  Age: 65 Year
  Sex: Female
  Weight: 75 kg

DRUGS (14)
  1. ALEVE (CAPLET) [Suspect]
     Indication: BACK PAIN
     Dosage: TOTAL DAILY DOSE: 1320 MG  UNIT DOSE: 220 MG
     Route: 048
     Dates: start: 20060122, end: 20060122
  2. ASPIRIN [Suspect]
     Indication: PROPHYLAXIS
     Dosage: TOTAL DAILY DOSE: 81 MG  UNIT DOSE: 81 MG
     Route: 048
  3. DEMADEX [Concomitant]
  4. IMDUR [Concomitant]
  5. CARDIZEM CD [Concomitant]
  6. PREVACID [Concomitant]
  7. PRAVACHOL [Concomitant]
  8. REGLAN [Concomitant]
  9. DUONEB [Concomitant]
  10. COMBIVENT [Concomitant]
  11. ADVAIR DISKUS 100/50 [Concomitant]
  12. CRESTOR [Concomitant]
  13. NITROSTAT [Concomitant]
  14. OVER THE COUNTER COUGH MEDICINE [Concomitant]

REACTIONS (19)
  - ANAPHYLACTIC SHOCK [None]
  - ASTHENIA [None]
  - CARDIAC ARREST [None]
  - DYSPNOEA [None]
  - GAIT DISTURBANCE [None]
  - HYPOTENSION [None]
  - PEPTIC ULCER [None]
  - POSTOPERATIVE WOUND INFECTION [None]
  - PRODUCTIVE COUGH [None]
  - PULSE PRESSURE DECREASED [None]
  - RASH GENERALISED [None]
  - RESPIRATION ABNORMAL [None]
  - RESPIRATORY ARREST [None]
  - RESPIRATORY FAILURE [None]
  - RESPIRATORY TRACT INFECTION [None]
  - SWELLING [None]
  - TRACHEOSTOMY MALFUNCTION [None]
  - URTICARIA GENERALISED [None]
  - VULVOVAGINITIS TRICHOMONAL [None]
